FAERS Safety Report 6028250-1 (Version None)
Quarter: 2008Q4

REPORT INFORMATION
  Report Type: 
  Country: None (occurrence: None)
  Receive Date: 20081231
  Receipt Date: 20081222
  Transmission Date: 20090506
  Serious: Yes (Hospitalization)
  Sender: FDA-Public Use
  Company Number: 2008AP003561

PATIENT
  Age: 74 Year
  Sex: Female

DRUGS (6)
  1. CARBAMAZEPINE [Suspect]
     Indication: SCHIZOPHRENIFORM DISORDER
     Dosage: 200 MG; PO; QD
     Route: 048
     Dates: start: 20080604, end: 20080608
  2. PERAZINE (PERAZINE) [Concomitant]
  3. ..................... [Concomitant]
  4. OLANZAPINE [Concomitant]
  5. HALOPERIDOL (HALOPERIDOL) [Concomitant]
  6. CARBAMAZEPINE [Concomitant]

REACTIONS (1)
  - DERMATITIS ALLERGIC [None]
